FAERS Safety Report 18758478 (Version 1)
Quarter: 2021Q1

REPORT INFORMATION
  Report Type: Other
  Country: CA (occurrence: CA)
  Receive Date: 20210120
  Receipt Date: 20210120
  Transmission Date: 20210419
  Serious: Yes (Other)
  Sender: FDA-Public Use
  Company Number: CA-CELLTRION INC.-2021CA000290

PATIENT

DRUGS (14)
  1. PERINDOPRIL [Concomitant]
     Active Substance: PERINDOPRIL
     Dosage: 6.0 MG, 1 EVERY 1 DAYS
     Route: 048
  2. PREDNISONE. [Concomitant]
     Active Substance: PREDNISONE
     Dosage: 5.0 MG, 1 EVERY 1 DAYS
     Route: 048
  3. RITUXIMAB (UNKNOWN) [Suspect]
     Active Substance: RITUXIMAB
     Indication: TRANSPLANT REJECTION
     Dosage: THERAPY DURATION: ?59.0
     Route: 041
  4. ADVAGRAF [Concomitant]
     Active Substance: TACROLIMUS
     Dosage: 5.0 MG, 1 EVERY 1 DAYS
     Route: 048
  5. AMLODIPINE BESILATE [Concomitant]
     Active Substance: AMLODIPINE BESYLATE
     Dosage: 7.5 MG, 1 EVERY 1 DAYS
     Route: 048
  6. BENADRYL [Concomitant]
     Active Substance: DIPHENHYDRAMINE HYDROCHLORIDE
     Indication: PREMEDICATION
     Dosage: 50.0 MG
     Route: 048
  7. CLONIDINE. [Concomitant]
     Active Substance: CLONIDINE
  8. MACROGOL [Concomitant]
     Active Substance: POLYETHYLENE GLYCOLS
     Dosage: 17.0 GRAM
     Route: 048
  9. TYLENOL [Concomitant]
     Active Substance: ACETAMINOPHEN
     Indication: PREMEDICATION
     Dosage: 650.0 MG
     Route: 048
  10. CALCIUM [Concomitant]
     Active Substance: CALCIUM
  11. ACTEMRA [Suspect]
     Active Substance: TOCILIZUMAB
     Indication: TRANSPLANT REJECTION
     Dosage: 500.0 MG, 1 EVERY 4 WEEKS
     Route: 042
  12. ACTEMRA [Suspect]
     Active Substance: TOCILIZUMAB
     Indication: TRANSPLANT REJECTION
     Dosage: 520.0 MG, 1 EVERY 4 WEEKS
     Route: 042
  13. MYCOPHENOLATE MOFETIL. [Concomitant]
     Active Substance: MYCOPHENOLATE MOFETIL
     Route: 065
  14. SULFAMETHOXAZOLE/TRIMETHOPRIM [Concomitant]
     Active Substance: SULFAMETHOXAZOLE\TRIMETHOPRIM
     Dosage: 0.5 MG, 1 EVERY 1 DAYS
     Route: 048

REACTIONS (17)
  - Blood urea increased [Unknown]
  - Renal tubular necrosis [Unknown]
  - Blood creatine increased [Unknown]
  - Blood magnesium decreased [Unknown]
  - Haematocrit decreased [Unknown]
  - Off label use [Unknown]
  - Arterial disorder [Unknown]
  - Chronic allograft nephropathy [Unknown]
  - Urine albumin/creatinine ratio increased [Unknown]
  - Weight increased [Unknown]
  - Blood alkaline phosphatase decreased [Unknown]
  - Lymphocyte count decreased [Unknown]
  - Anti-glomerular basement membrane disease [Unknown]
  - Urine protein/creatinine ratio increased [Unknown]
  - Vascular hyalinosis [Unknown]
  - Monocyte count increased [Unknown]
  - Red blood cell count decreased [Unknown]
